FAERS Safety Report 9890661 (Version 1)
Quarter: 2014Q1

REPORT INFORMATION
  Report Type: Spontaneous
  Country: FR (occurrence: FR)
  Receive Date: 20140212
  Receipt Date: 20140212
  Transmission Date: 20141002
  Serious: Yes (Hospitalization)
  Sender: FDA-Public Use
  Company Number: FR-GE HEALTHCARE MEDICAL DIAGNOSTICS-OMPQ-PR-1401S-0105

PATIENT
  Age: 52 Year
  Sex: Female

DRUGS (5)
  1. OMNIPAQUE [Suspect]
     Indication: PRODUCT USED FOR UNKNOWN INDICATION
     Dosage: DOSE NOT REPORTED
     Route: 042
     Dates: start: 20131201, end: 20131201
  2. OMNIPAQUE [Suspect]
     Indication: DIAGNOSTIC PROCEDURE
  3. ROCEPHINE [Suspect]
     Route: 042
     Dates: start: 20131201, end: 20131201
  4. GENTAMICINE [Suspect]
     Route: 042
     Dates: start: 20131202, end: 20131206
  5. AMOXICILLINE [Suspect]
     Route: 042
     Dates: start: 20131202, end: 20131206

REACTIONS (2)
  - Rash maculo-papular [Recovered/Resolved]
  - Eosinophil count increased [Recovered/Resolved]
